FAERS Safety Report 15008181 (Version 1)
Quarter: 2018Q2

REPORT INFORMATION
  Report Type: Spontaneous
  Country: US (occurrence: US)
  Receive Date: 20180613
  Receipt Date: 20180613
  Transmission Date: 20180711
  Serious: No
  Sender: FDA-Public Use
  Company Number: US-MITSUBISHI TANABE PHARMA CORPORATION-MPE2018-0013321

PATIENT
  Age: 65 Year
  Sex: Male
  Weight: 106.24 kg

DRUGS (5)
  1. RILUZOLE. [Concomitant]
     Active Substance: RILUZOLE
     Route: 065
  2. RADICAVA [Suspect]
     Active Substance: EDARAVONE
     Indication: AMYOTROPHIC LATERAL SCLEROSIS
     Route: 042
     Dates: start: 20180402
  3. NORCO [Concomitant]
     Active Substance: ACETAMINOPHEN\HYDROCODONE BITARTRATE
     Dosage: 10/325 MG
     Route: 065
  4. ATROVENT HFA [Concomitant]
     Active Substance: IPRATROPIUM BROMIDE
     Route: 065
  5. ALBUTEROL SULFATE. [Concomitant]
     Active Substance: ALBUTEROL SULFATE
     Dosage: 2.5 MG/3ML
     Route: 065

REACTIONS (2)
  - No adverse event [Recovered/Resolved]
  - Inappropriate schedule of drug administration [Recovered/Resolved]
